FAERS Safety Report 14861639 (Version 1)
Quarter: 2018Q2

REPORT INFORMATION
  Report Type: Spontaneous
  Country: US (occurrence: US)
  Receive Date: 20180423
  Receipt Date: 20180423
  Transmission Date: 20180711
  Serious: Yes (Other)
  Sender: FDA-Public Use
  Company Number: None

PATIENT
  Age: 36 Year
  Sex: Female
  Weight: 85.5 kg

DRUGS (1)
  1. FLONASE SENSIMIST ALLERGY RELIEF [Suspect]
     Active Substance: FLUTICASONE FUROATE
     Indication: HYPERSENSITIVITY
     Dosage: ?          QUANTITY:2 SPRAY(S);?
     Route: 055
     Dates: start: 20180418, end: 20180423

REACTIONS (7)
  - Anxiety [None]
  - Panic attack [None]
  - Drug dose omission [None]
  - Immobile [None]
  - Muscle spasms [None]
  - Decreased activity [None]
  - Mental disorder [None]

NARRATIVE: CASE EVENT DATE: 20180423
